FAERS Safety Report 14683168 (Version 1)
Quarter: 2018Q1

REPORT INFORMATION
  Report Type: Spontaneous
  Country: US (occurrence: US)
  Receive Date: 20180326
  Receipt Date: 20180326
  Transmission Date: 20180509
  Serious: Yes (Disabling, Other)
  Sender: FDA-Public Use
  Company Number: None

PATIENT
  Age: 51 Year
  Sex: Female
  Weight: 99.79 kg

DRUGS (17)
  1. LISINOPRIL 5MG TAB [Suspect]
     Active Substance: LISINOPRIL
     Indication: DIABETES MELLITUS
     Dosage: FREQUENCY - 1 PILL DAILY IN AM
     Route: 048
     Dates: start: 20171229, end: 20180209
  2. MULTIVITAMIN [Concomitant]
     Active Substance: VITAMINS
  3. SYNTHROID [Concomitant]
     Active Substance: LEVOTHYROXINE SODIUM
  4. CRESTOR [Concomitant]
     Active Substance: ROSUVASTATIN CALCIUM
  5. VENLAFAXINE [Concomitant]
     Active Substance: VENLAFAXINE HYDROCHLORIDE
  6. ONDANSETRON [Concomitant]
     Active Substance: ONDANSETRON
  7. ROSEMARY (HERB) [Concomitant]
  8. CLOZAPINE. [Concomitant]
     Active Substance: CLOZAPINE
  9. BENADRYL [Concomitant]
     Active Substance: DIPHENHYDRAMINE HYDROCHLORIDE
  10. ZOFRAN [Concomitant]
     Active Substance: ONDANSETRON HYDROCHLORIDE
  11. LANTUS [Concomitant]
     Active Substance: INSULIN GLARGINE
  12. CLONOPIN [Suspect]
     Active Substance: CLONAZEPAM
  13. TERBINAFINE HYDROCHLORIDE. [Concomitant]
     Active Substance: TERBINAFINE HYDROCHLORIDE
  14. VICTOZA [Concomitant]
     Active Substance: LIRAGLUTIDE
  15. VITAMIN B COMPLEX [Concomitant]
     Active Substance: CYANOCOBALAMIN\DEXPANTHENOL\NIACINAMIDE\PYRIDOXINE HYDROCHLORIDE\RIBOFLAVIN 5^-PHOSPHATE SODIUM\THIAMINE HYDROCHLORIDE\VITAMIN B COMPLEX
  16. INSULIN PENS [Concomitant]
  17. METFORMIN [Concomitant]
     Active Substance: METFORMIN HYDROCHLORIDE

REACTIONS (2)
  - Hypotension [None]
  - Dizziness [None]

NARRATIVE: CASE EVENT DATE: 20180209
